FAERS Safety Report 6819183-9 (Version None)
Quarter: 2010Q3

REPORT INFORMATION
  Report Type: 
  Country: None (occurrence: None)
  Receive Date: 20100707
  Receipt Date: 20100628
  Transmission Date: 20110219
  Serious: Yes (Hospitalization)
  Sender: FDA-Public Use
  Company Number: NL-BAXTER-2010BH012852

PATIENT
  Age: 58 Year
  Sex: Female

DRUGS (1)
  1. TISSUCOL/TISSEEL DUO STIM3 [Suspect]
     Indication: ABDOMINAL WALL OPERATION
     Route: 065
     Dates: start: 20100414, end: 20100414

REACTIONS (1)
  - SEROMA [None]
